FAERS Safety Report 9711544 (Version 1)
Quarter: 2013Q4

REPORT INFORMATION
  Report Type: Spontaneous
  Country: US (occurrence: US)
  Receive Date: 20131126
  Receipt Date: 20131126
  Transmission Date: 20140711
  Serious: No
  Sender: FDA-Public Use
  Company Number: US-BRISTOL-MYERS SQUIBB COMPANY-19074624

PATIENT
  Age: 58 Year
  Sex: Male

DRUGS (3)
  1. BYDUREON [Suspect]
     Dates: start: 20130523
  2. NEXIUM [Concomitant]
  3. HYZAAR [Concomitant]

REACTIONS (3)
  - Lipodystrophy acquired [Unknown]
  - Injection site swelling [Unknown]
  - Injection site pain [Unknown]
